FAERS Safety Report 6537441-2 (Version None)
Quarter: 2010Q1

REPORT INFORMATION
  Report Type: 
  Country: None (occurrence: None)
  Receive Date: 20100114
  Receipt Date: 20100106
  Transmission Date: 20100710
  Serious: Yes (Hospitalization, Other)
  Sender: FDA-Public Use
  Company Number: US-JNJFOC-20100102494

PATIENT
  Sex: Male
  Weight: 53.52 kg

DRUGS (12)
  1. DURAGESIC-100 [Suspect]
     Indication: BACK PAIN
     Route: 062
  2. DURAGESIC-100 [Suspect]
     Route: 062
  3. DURAGESIC-100 [Suspect]
     Route: 062
  4. PREVACID [Concomitant]
     Indication: LIVER TRANSPLANT
     Route: 048
  5. CELLCEPT [Concomitant]
     Indication: PROPHYLAXIS AGAINST TRANSPLANT REJECTION
     Route: 048
  6. MAGNESIUM OXIDE [Concomitant]
     Indication: LIVER TRANSPLANT
     Route: 048
  7. SODIUM BICARBONATE [Concomitant]
     Indication: LIVER TRANSPLANT
     Dosage: 650 MG, 2 TIMES DAILY
     Route: 048
  8. BACTRIM [Concomitant]
     Indication: LIVER TRANSPLANT
     Route: 048
  9. ALLOPURINOL [Concomitant]
     Indication: PROPHYLAXIS AGAINST TRANSPLANT REJECTION
     Route: 048
  10. NEORAL [Concomitant]
     Indication: PROPHYLAXIS AGAINST TRANSPLANT REJECTION
     Route: 048
  11. DIOVAN [Concomitant]
     Indication: BLOOD PRESSURE
     Route: 048
  12. PREDNISONE [Concomitant]
     Indication: PROPHYLAXIS AGAINST TRANSPLANT REJECTION
     Route: 048

REACTIONS (4)
  - CERVICAL VERTEBRAL FRACTURE [None]
  - DRUG EFFECT DECREASED [None]
  - INSOMNIA [None]
  - NECK PAIN [None]
